FAERS Safety Report 5256876-1 (Version None)
Quarter: 2007Q1

REPORT INFORMATION
  Report Type: 
  Country: None (occurrence: None)
  Receive Date: 20070306
  Receipt Date: 20070226
  Transmission Date: 20070707
  Serious: Yes (Hospitalization, Other)
  Sender: FDA-Public Use
  Company Number: US-ELI_LILLY_AND_COMPANY-US200701001278

PATIENT
  Age: 81 Year
  Sex: Female

DRUGS (3)
  1. FORTEO [Suspect]
     Indication: OSTEOPOROSIS
     Dosage: UNK, UNK
     Dates: start: 20061001
  2. FORTEO [Suspect]
     Dates: start: 20061001
  3. FORTEO [Suspect]
     Dosage: UNK D/F, UNKNOWN
     Dates: start: 20061001

REACTIONS (6)
  - BACK PAIN [None]
  - GAIT DISTURBANCE [None]
  - HYPOAESTHESIA [None]
  - MOVEMENT DISORDER [None]
  - PARAPARESIS [None]
  - SPINAL COMPRESSION FRACTURE [None]
